FAERS Safety Report 6361423-7 (Version None)
Quarter: 2009Q3

REPORT INFORMATION
  Report Type: 
  Country: None (occurrence: None)
  Receive Date: 20090918
  Receipt Date: 20090904
  Transmission Date: 20100115
  Serious: Yes (Life-Threatening, Hospitalization)
  Sender: FDA-Public Use
  Company Number: IT-PFIZER INC-2009244596

PATIENT
  Age: 75 Year

DRUGS (6)
  1. SOMAVERT [Suspect]
     Indication: ACROMEGALY
     Dosage: 10 MG, 1X/DAY
     Route: 058
     Dates: start: 20090501, end: 20090710
  2. ACETYLSALICYLIC ACID [Concomitant]
  3. ENALAPRIL [Concomitant]
  4. NEBIVOLOL [Concomitant]
  5. PERINDOPRIL [Concomitant]
  6. HYDROCHLOROTHIAZIDE [Concomitant]

REACTIONS (3)
  - DYSPHAGIA [None]
  - OESOPHAGEAL ADENOCARCINOMA [None]
  - WEIGHT DECREASED [None]
